FAERS Safety Report 7138064-7 (Version None)
Quarter: 2010Q4

REPORT INFORMATION
  Report Type: 
  Country: None (occurrence: None)
  Receive Date: 20101206
  Receipt Date: 20101129
  Transmission Date: 20110411
  Serious: Yes (Hospitalization)
  Sender: FDA-Public Use
  Company Number: ZA-B.I. PHARMACEUTICALS,INC./RIDGEFIELD-2010-ZA-00185ZA

PATIENT
  Sex: Female

DRUGS (3)
  1. PRADAXA [Suspect]
     Indication: HIP ARTHROPLASTY
     Dosage: 150 MG
     Route: 048
     Dates: start: 20101007, end: 20101029
  2. TAREG [Concomitant]
     Dosage: 160 MG
     Route: 048
  3. LANSOLOC [Concomitant]
     Dosage: 30 MG
     Route: 048

REACTIONS (1)
  - DEEP VEIN THROMBOSIS [None]
